FAERS Safety Report 4435173-8 (Version None)
Quarter: 2004Q3

REPORT INFORMATION
  Report Type: 
  Country: None (occurrence: None)
  Receive Date: 20040826
  Receipt Date: 20040816
  Transmission Date: 20050211
  Serious: Yes (Hospitalization)
  Sender: FDA-Public Use
  Company Number: HQWYE291416AUG04

PATIENT
  Sex: Female

DRUGS (4)
  1. CEFIXORAL (CEFIXIME, UNSPEC) [Suspect]
     Indication: CYSTITIS
     Dosage: 400 MG DAILY  ORAL
     Route: 048
     Dates: start: 20040723, end: 20040803
  2. LANOXIN [Concomitant]
  3. LASIX [Concomitant]
  4. KARVEA (IRBESARTAN) [Concomitant]

REACTIONS (1)
  - RASH MACULO-PAPULAR [None]
